FAERS Safety Report 11702676 (Version 2)
Quarter: 2016Q1

REPORT INFORMATION
  Report Type: Spontaneous
  Country: US (occurrence: US)
  Receive Date: 20151105
  Receipt Date: 20160202
  Transmission Date: 20160525
  Serious: No
  Sender: FDA-Public Use
  Company Number: US-PFIZER INC-2015366668

PATIENT
  Age: 70 Year
  Sex: Female

DRUGS (2)
  1. FASLODEX [Concomitant]
     Active Substance: FULVESTRANT
  2. IBRANCE [Suspect]
     Active Substance: PALBOCICLIB
     Indication: NEOPLASM MALIGNANT
     Dosage: 100 MG, UNK
     Dates: start: 20151018

REACTIONS (6)
  - Pain in extremity [Unknown]
  - Disease progression [Unknown]
  - Head discomfort [Unknown]
  - Neoplasm malignant [Unknown]
  - Balance disorder [Unknown]
  - Product use issue [Unknown]
